FAERS Safety Report 5515863-6 (Version None)
Quarter: 2007Q4

REPORT INFORMATION
  Report Type: 
  Country: None (occurrence: None)
  Receive Date: 20071109
  Receipt Date: 20071105
  Transmission Date: 20080405
  Serious: Yes (Other)
  Sender: FDA-Public Use
  Company Number: 2007SP021240

PATIENT
  Sex: Female
  Weight: 74 kg

DRUGS (5)
  1. CELESTONE [Suspect]
     Indication: BRONCHOPNEUMOPATHY
     Dosage: 4 MG; QD; PO
     Route: 048
     Dates: start: 20071002, end: 20071003
  2. AMOXICILLIN [Concomitant]
  3. SPIRIVA [Concomitant]
  4. IPRATROPIUM BROMIDE [Concomitant]
  5. BUDESONIDE [Concomitant]

REACTIONS (3)
  - GENERALISED ERYTHEMA [None]
  - PARAESTHESIA [None]
  - SWELLING [None]
